FAERS Safety Report 21971980 (Version 1)
Quarter: 2023Q1

REPORT INFORMATION
  Report Type: Report from Study
  Country: DE (occurrence: DE)
  Receive Date: 20230209
  Receipt Date: 20230209
  Transmission Date: 20230418
  Serious: Yes (Hospitalization)
  Sender: FDA-Public Use
  Company Number: DE-AUROBINDO-AUR-APL-2023-005999

PATIENT
  Age: 14 Year

DRUGS (6)
  1. RISPERIDONE [Suspect]
     Active Substance: RISPERIDONE
     Indication: Emotional disorder
     Dosage: UNK
     Route: 065
  2. RISPERIDONE [Suspect]
     Active Substance: RISPERIDONE
     Indication: Abnormal behaviour
  3. RISPERIDONE [Suspect]
     Active Substance: RISPERIDONE
     Indication: Intellectual disability
  4. THIORIDAZINE [Suspect]
     Active Substance: THIORIDAZINE
     Indication: Intellectual disability
     Dosage: UNK
     Route: 065
  5. THIORIDAZINE [Suspect]
     Active Substance: THIORIDAZINE
     Indication: Emotional disorder
  6. THIORIDAZINE [Suspect]
     Active Substance: THIORIDAZINE
     Indication: Abnormal behaviour

REACTIONS (3)
  - Salivary hypersecretion [Unknown]
  - Off label use [Unknown]
  - Drug interaction [Unknown]
